FAERS Safety Report 9018345 (Version 1)
Quarter: 2013Q1

REPORT INFORMATION
  Report Type: Spontaneous
  Country: US (occurrence: US)
  Receive Date: 20130117
  Receipt Date: 20130117
  Transmission Date: 20140127
  Serious: Yes (Other)
  Sender: FDA-Public Use
  Company Number: US-009507513-1301USA003622

PATIENT
  Age: 35 Year
  Sex: Female

DRUGS (6)
  1. MONTELUKAST SODIUM [Suspect]
     Route: 048
  2. FEXOFENADINE HYDROCHLORIDE [Suspect]
     Indication: PRODUCT USED FOR UNKNOWN INDICATION
     Route: 048
  3. ALBUTEROL SULFATE [Suspect]
     Dosage: INHALATION RESPIRATORY (INHALATION)
  4. LANSOPRAZOLE [Suspect]
     Dosage: 60 MG, (30 MG, 2 IN 1 DAY)
     Route: 048
  5. CLARITHROMYCIN [Suspect]
     Dosage: 1000 MG, (500 MG 2 IN 1 D)
     Route: 048
  6. AMOXICILLIN [Suspect]
     Dosage: 4 DOSAGE FORMS (2 DOSAGE FORMS, 2 IN 1 D)
     Route: 048

REACTIONS (3)
  - Tongue discolouration [Unknown]
  - Mucosal discolouration [Unknown]
  - Lip discolouration [Unknown]
